FAERS Safety Report 24439586 (Version 1)
Quarter: 2024Q4

REPORT INFORMATION
  Report Type: Spontaneous
  Country: ES (occurrence: ES)
  Receive Date: 20241015
  Receipt Date: 20241015
  Transmission Date: 20250114
  Serious: Yes (Hospitalization)
  Sender: PURDUE
  Company Number: ES-PURDUE-USA-2024-0312530

PATIENT
  Age: 91 Year
  Sex: Female
  Weight: 73 kg

DRUGS (1)
  1. MORPHINE SULFATE [Suspect]
     Active Substance: MORPHINE SULFATE
     Indication: Cancer pain
     Dosage: 15MG/12H
     Route: 048
     Dates: start: 20240912, end: 20240916

REACTIONS (3)
  - Respiratory failure [Recovered/Resolved]
  - Metabolic alkalosis [Recovered/Resolved]
  - Respiratory acidosis [Recovered/Resolved]

NARRATIVE: CASE EVENT DATE: 20240916
